FAERS Safety Report 6918888-9 (Version None)
Quarter: 2010Q3

REPORT INFORMATION
  Report Type: 
  Country: None (occurrence: None)
  Receive Date: 20100811
  Receipt Date: 20100809
  Transmission Date: 20110219
  Serious: No
  Sender: FDA-Public Use
  Company Number: US-ROXANE LABORATORIES, INC.-2010-RO-01032RO

PATIENT
  Sex: Female

DRUGS (2)
  1. PREDNISONE TAB [Suspect]
  2. RAPAMUNE [Suspect]

REACTIONS (1)
  - TYPE 1 DIABETES MELLITUS [None]
